FAERS Safety Report 8549069-3 (Version None)
Quarter: 2012Q3

REPORT INFORMATION
  Report Type: 
  Country: None (occurrence: None)
  Receive Date: 20120730
  Receipt Date: 20120724
  Transmission Date: 20120928
  Serious: No
  Sender: FDA-Public Use
  Company Number: US-PFIZER INC-2012179859

PATIENT
  Sex: Male
  Weight: 127 kg

DRUGS (3)
  1. GEODON [Suspect]
     Indication: PSYCHOTIC DISORDER
     Dosage: 60 MG, 2X/DAY
  2. BUSPIRONE [Concomitant]
     Dosage: 15 MG, DAILY
  3. SERTRALINE [Concomitant]
     Dosage: 100 MG, DAILY

REACTIONS (4)
  - DRUG WITHDRAWAL SYNDROME [None]
  - THINKING ABNORMAL [None]
  - FEELING OF DESPAIR [None]
  - MALAISE [None]
